FAERS Safety Report 4804193-3 (Version None)
Quarter: 2005Q4

REPORT INFORMATION
  Report Type: 
  Country: None (occurrence: None)
  Receive Date: 20051018
  Receipt Date: 20051018
  Transmission Date: 20060501
  Serious: Yes (Other)
  Sender: FDA-Public Use
  Company Number: None

PATIENT
  Sex: Female
  Weight: 68.0396 kg

DRUGS (2)
  1. MIRAPEX [Suspect]
     Indication: PARKINSON'S DISEASE
     Dosage: 1 MG TID PO
     Route: 048
     Dates: start: 20010405, end: 20050802
  2. SINEMET [Concomitant]

REACTIONS (3)
  - ABNORMAL BEHAVIOUR [None]
  - GAMBLING [None]
  - OBSESSIVE-COMPULSIVE DISORDER [None]
